FAERS Safety Report 16417078 (Version 2)
Quarter: 2021Q2

REPORT INFORMATION
  Report Type: Spontaneous
  Country: US (occurrence: US)
  Receive Date: 20190611
  Receipt Date: 20210414
  Transmission Date: 20210716
  Serious: No
  Sender: FDA-Public Use
  Company Number: US-SA-2019SA150727

PATIENT
  Sex: Female

DRUGS (1)
  1. UNISOM QUICKMELTS [Suspect]
     Active Substance: DIPHENHYDRAMINE

REACTIONS (1)
  - Product packaging quantity issue [Unknown]
